FAERS Safety Report 12120225 (Version 1)
Quarter: 2016Q1

REPORT INFORMATION
  Report Type: Spontaneous
  Country: JP (occurrence: JP)
  Receive Date: 20160226
  Receipt Date: 20160226
  Transmission Date: 20160526
  Serious: Yes (Other)
  Sender: FDA-Public Use
  Company Number: JP-AMGEN-JPNSP2016023624

PATIENT
  Age: 82 Year
  Sex: Female

DRUGS (2)
  1. PRALIA [Suspect]
     Active Substance: DENOSUMAB
     Indication: PRODUCT USED FOR UNKNOWN INDICATION
     Dosage: 60 MG, Q6MO
     Route: 058
     Dates: start: 20160126
  2. EDIROL [Concomitant]
     Active Substance: ELDECALCITOL
     Dosage: UNK
     Route: 065

REACTIONS (5)
  - Visual impairment [Recovered/Resolved]
  - Erythema [Recovered/Resolved]
  - Mental impairment [Recovered/Resolved]
  - Paraesthesia oral [Recovered/Resolved]
  - Swelling face [Recovered/Resolved]
